FAERS Safety Report 21926560 (Version 2)
Quarter: 2023Q2

REPORT INFORMATION
  Report Type: Spontaneous
  Country: US (occurrence: US)
  Receive Date: 20230130
  Receipt Date: 20230505
  Transmission Date: 20230722
  Serious: Yes (Hospitalization)
  Sender: FDA-Public Use
  Company Number: US-ELI_LILLY_AND_COMPANY-US202301009222

PATIENT
  Age: 34 Year
  Sex: Female
  Weight: 97 kg

DRUGS (6)
  1. MOUNJARO [Suspect]
     Active Substance: TIRZEPATIDE
     Indication: Diabetes mellitus
     Dosage: 5 MG, WEEKLY (1/W)
     Route: 065
     Dates: start: 20220719
  2. MOUNJARO [Suspect]
     Active Substance: TIRZEPATIDE
     Indication: Obesity
  3. MOUNJARO [Suspect]
     Active Substance: TIRZEPATIDE
     Indication: Polycystic ovaries
  4. MOUNJARO [Suspect]
     Active Substance: TIRZEPATIDE
     Indication: Diabetes mellitus
     Dosage: 10 MG, WEEKLY (1/W)
     Route: 065
     Dates: end: 20221105
  5. MOUNJARO [Suspect]
     Active Substance: TIRZEPATIDE
     Indication: Obesity
  6. MOUNJARO [Suspect]
     Active Substance: TIRZEPATIDE
     Indication: Polycystic ovaries

REACTIONS (2)
  - Pancreatitis [Recovered/Resolved]
  - Inappropriate schedule of product administration [Unknown]

NARRATIVE: CASE EVENT DATE: 20221109
